FAERS Safety Report 9292317 (Version 1)
Quarter: 2013Q2

REPORT INFORMATION
  Report Type: Spontaneous
  Country: BE (occurrence: BE)
  Receive Date: 20130516
  Receipt Date: 20130516
  Transmission Date: 20140414
  Serious: Yes (Death, Other)
  Sender: FDA-Public Use
  Company Number: PHHY2013BE047926

PATIENT
  Age: 17 Year
  Sex: Male

DRUGS (1)
  1. RITALINE [Suspect]
     Dosage: UNK UKN, UNK

REACTIONS (3)
  - Completed suicide [Fatal]
  - Depression suicidal [Fatal]
  - Overdose [Unknown]
